FAERS Safety Report 5136687-8 (Version None)
Quarter: 2006Q4

REPORT INFORMATION
  Report Type: 
  Country: None (occurrence: None)
  Receive Date: 20061023
  Receipt Date: 20061016
  Transmission Date: 20070319
  Serious: Yes (Death, Hospitalization)
  Sender: FDA-Public Use
  Company Number: 163-20785-06080073

PATIENT
  Age: 44 Year
  Sex: Female

DRUGS (4)
  1. THALOMID [Suspect]
     Indication: OVARIAN CANCER
     Dosage: 100-200 MG, DAILY, ORAL
     Route: 048
     Dates: start: 20060327, end: 20060101
  2. NEXAVAR [Suspect]
     Indication: OVARIAN CANCER
     Dates: start: 20060501
  3. IFOSFAMIDE [Suspect]
     Indication: OVARIAN CANCER
     Dates: start: 20060501
  4. ETOPOSIDE [Suspect]
     Indication: OVARIAN CANCER
     Dates: start: 20060501

REACTIONS (8)
  - ABDOMINAL PAIN [None]
  - CARDIOPULMONARY FAILURE [None]
  - DEPRESSION [None]
  - DYSPNOEA [None]
  - HYPOXIA [None]
  - MALIGNANT NEOPLASM PROGRESSION [None]
  - OVARIAN CANCER [None]
  - PAIN [None]
